FAERS Safety Report 6434904-5 (Version None)
Quarter: 2009Q4

REPORT INFORMATION
  Report Type: 
  Country: None (occurrence: None)
  Receive Date: 20091109
  Receipt Date: 20091109
  Transmission Date: 20100525
  Serious: Yes (Hospitalization)
  Sender: FDA-Public Use
  Company Number: None

PATIENT
  Age: 49 Year
  Sex: Female

DRUGS (7)
  1. PANITUMUMAB [Suspect]
     Indication: COLON CANCER METASTATIC
     Dosage: 6MG/M2 BOLUS EVERY 2 WEEKS IV
     Route: 042
     Dates: start: 20090925, end: 20091009
  2. COLACE [Concomitant]
  3. LORAZEPAM [Concomitant]
  4. METOCLOPRAMIDE [Concomitant]
  5. MIRALAX [Concomitant]
  6. MORPHINE SULFATE [Concomitant]
  7. MORPHINE [Concomitant]

REACTIONS (6)
  - ASTHENIA [None]
  - CONFUSIONAL STATE [None]
  - DEHYDRATION [None]
  - FATIGUE [None]
  - MENTAL STATUS CHANGES [None]
  - URINARY TRACT INFECTION [None]
